FAERS Safety Report 12897378 (Version 1)
Quarter: 2016Q4

REPORT INFORMATION
  Report Type: Spontaneous
  Country: US (occurrence: US)
  Receive Date: 20161031
  Receipt Date: 20161031
  Transmission Date: 20170207
  Serious: No
  Sender: FDA-Public Use
  Company Number: PHEH2016US028255

PATIENT
  Sex: Female

DRUGS (1)
  1. ENTRESTO [Suspect]
     Active Substance: SACUBITRIL\VALSARTAN
     Indication: PERIPARTUM CARDIOMYOPATHY
     Dosage: 50 MG, QD
     Route: 048

REACTIONS (2)
  - Hypoaesthesia oral [Not Recovered/Not Resolved]
  - Product use issue [Unknown]
